FAERS Safety Report 25400053 (Version 2)
Quarter: 2025Q2

REPORT INFORMATION
  Report Type: Spontaneous
  Country: DE (occurrence: DE)
  Receive Date: 20250605
  Receipt Date: 20250619
  Transmission Date: 20250717
  Serious: Yes (Death, Life-Threatening, Hospitalization, Other)
  Sender: ALKEM
  Company Number: None

PATIENT
  Age: 53 Year
  Sex: Male

DRUGS (12)
  1. IBUPROFEN [Interacting]
     Active Substance: IBUPROFEN
     Indication: Prophylaxis
     Route: 065
  2. IBUPROFEN [Interacting]
     Active Substance: IBUPROFEN
     Indication: Inflammation
     Dosage: 400 MILLIGRAM, QD (TABLET, TAKEN AT LEAST 2 HOURS AFTER ASA)
     Route: 048
  3. ASPIRIN [Interacting]
     Active Substance: ASPIRIN
     Indication: Antiplatelet therapy
     Route: 048
  4. ASPIRIN [Interacting]
     Active Substance: ASPIRIN
     Dosage: 100 MILLIGRAM, QD
     Route: 048
  5. DEXAMETHASONE [Concomitant]
     Active Substance: DEXAMETHASONE
     Indication: Steroid therapy
     Route: 065
  6. DEXAMETHASONE [Concomitant]
     Active Substance: DEXAMETHASONE
     Indication: Angioedema
     Route: 042
  7. DEXAMETHASONE [Concomitant]
     Active Substance: DEXAMETHASONE
     Indication: Inflammation
     Dosage: 12 MILLIGRAM, QD (3X4 MILLIGRAM DAILY)
     Route: 042
  8. DEXAMETHASONE [Concomitant]
     Active Substance: DEXAMETHASONE
     Indication: Prophylaxis
  9. EPTIFIBATIDE [Concomitant]
     Active Substance: EPTIFIBATIDE
     Indication: Antiplatelet therapy
     Route: 065
  10. HEPARIN [Concomitant]
     Active Substance: HEPARIN SODIUM
     Indication: Anticoagulant therapy
     Route: 042
  11. TICAGRELOR [Concomitant]
     Active Substance: TICAGRELOR
     Indication: Antiplatelet therapy
     Dosage: 180 MILLIGRAM, QD
     Route: 048
  12. TICAGRELOR [Concomitant]
     Active Substance: TICAGRELOR
     Dosage: 180 MILLIGRAM, QD (2X90 MILLIGRAM TICAGRELOR, BOTH DAILY)
     Route: 065

REACTIONS (10)
  - Cardio-respiratory arrest [Fatal]
  - Coma [Fatal]
  - Drug interaction [Fatal]
  - Brain herniation [Fatal]
  - Brain oedema [Fatal]
  - Arterial thrombosis [Fatal]
  - Ischaemic cerebral infarction [Fatal]
  - Basilar artery thrombosis [Fatal]
  - Medication error [Fatal]
  - Fall [Unknown]
